FAERS Safety Report 5104358-X (Version None)
Quarter: 2006Q3

REPORT INFORMATION
  Report Type: 
  Country: None (occurrence: None)
  Receive Date: 20060914
  Receipt Date: 20060906
  Transmission Date: 20061208
  Serious: Yes (Death)
  Sender: FDA-Public Use
  Company Number: IT-JNJFOC-20060900814

PATIENT
  Age: 90 Year
  Sex: Female

DRUGS (3)
  1. TAVANIC [Suspect]
     Indication: PNEUMONIA
     Route: 042
     Dates: start: 20060725, end: 20060806
  2. ACETAMINOPHEN [Suspect]
     Indication: DRUG USE FOR UNKNOWN INDICATION
     Route: 065
     Dates: start: 20060720, end: 20060722
  3. CEFTRIAXONE [Suspect]
     Indication: PNEUMONIA
     Route: 065
     Dates: start: 20060720, end: 20060722

REACTIONS (2)
  - DEATH [None]
  - TOXIC SKIN ERUPTION [None]
